FAERS Safety Report 22222862 (Version 2)
Quarter: 2023Q2

REPORT INFORMATION
  Report Type: Spontaneous
  Country: JP (occurrence: JP)
  Receive Date: 20230418
  Receipt Date: 20230522
  Transmission Date: 20230722
  Serious: Yes (Hospitalization, Other)
  Sender: FDA-Public Use
  Company Number: JP-OTSUKA-2023_009467

PATIENT
  Age: 51 Year
  Sex: Male
  Weight: 110 kg

DRUGS (28)
  1. SAMSCA [Suspect]
     Active Substance: TOLVAPTAN
     Indication: Cardiac failure chronic
     Dosage: 3.75MG(7.5MG0.5T), UNK
     Route: 048
  2. SAMSCA [Suspect]
     Active Substance: TOLVAPTAN
     Dosage: UNK
     Route: 065
  3. SAMSCA [Suspect]
     Active Substance: TOLVAPTAN
     Dosage: 7.5MG1T, UNK
     Route: 048
  4. SAMSCA [Suspect]
     Active Substance: TOLVAPTAN
     Dosage: 3.75MG(7.5MG0.5T), UNK
     Route: 048
  5. SAMSCA [Suspect]
     Active Substance: TOLVAPTAN
     Dosage: 7.5MG, UNK
     Route: 048
  6. CARVEDILOL [Concomitant]
     Active Substance: CARVEDILOL
     Indication: Product used for unknown indication
     Dosage: 10MG, UNK
     Route: 048
  7. BISOPROLOL FUMARATE [Concomitant]
     Active Substance: BISOPROLOL FUMARATE
     Indication: Product used for unknown indication
     Dosage: 5 MG, UNK
     Route: 048
  8. OLMESARTAN MEDOXOMIL [Concomitant]
     Active Substance: OLMESARTAN MEDOXOMIL
     Indication: Product used for unknown indication
     Dosage: 20MG, UNK
     Route: 048
     Dates: end: 20210527
  9. EPLERENONE [Concomitant]
     Active Substance: EPLERENONE
     Indication: Product used for unknown indication
     Dosage: 25MG, UNK
     Route: 048
     Dates: end: 20210827
  10. EPLERENONE [Concomitant]
     Active Substance: EPLERENONE
     Dosage: 12.5MG, UNK
     Route: 048
  11. EPLERENONE [Concomitant]
     Active Substance: EPLERENONE
     Dosage: 25MG, UNK
     Route: 048
  12. FUROSEMIDE [Concomitant]
     Active Substance: FUROSEMIDE
     Indication: Product used for unknown indication
     Dosage: 10MG, UNK
     Route: 048
     Dates: end: 20210726
  13. FUROSEMIDE [Concomitant]
     Active Substance: FUROSEMIDE
     Dosage: 20MG, UNK
     Route: 048
     Dates: end: 20220728
  14. FUROSEMIDE [Concomitant]
     Active Substance: FUROSEMIDE
     Dosage: 20MG, UNK
     Route: 048
  15. TRICHLORMETHIAZIDE [Concomitant]
     Active Substance: TRICHLORMETHIAZIDE
     Indication: Product used for unknown indication
     Dosage: 0.5MG, UNK
     Route: 048
     Dates: end: 20210827
  16. DAPAGLIFLOZIN PROPANEDIOL [Concomitant]
     Active Substance: DAPAGLIFLOZIN PROPANEDIOL
     Indication: Product used for unknown indication
     Dosage: 10MG, UNK
     Route: 048
  17. PIMOBENDAN [Concomitant]
     Active Substance: PIMOBENDAN
     Indication: Product used for unknown indication
     Dosage: 2.5MG (1.25MG2T), UNK
     Route: 048
  18. PIMOBENDAN [Concomitant]
     Active Substance: PIMOBENDAN
     Dosage: 5MG (1.25MG4T), UNK
     Route: 048
  19. ALLOPURINOL [Concomitant]
     Active Substance: ALLOPURINOL
     Indication: Product used for unknown indication
     Dosage: 100MG1T, UNK
     Route: 048
  20. DOXAZOSIN [Concomitant]
     Active Substance: DOXAZOSIN MESYLATE
     Indication: Product used for unknown indication
     Dosage: 2MG1T, UNK
     Route: 048
     Dates: end: 20210527
  21. CARPERITIDE [Concomitant]
     Active Substance: CARPERITIDE
     Indication: Product used for unknown indication
     Dosage: 0.010MCG/KG/MIN, UNK
     Route: 065
     Dates: end: 20210608
  22. CARPERITIDE [Concomitant]
     Active Substance: CARPERITIDE
     Dosage: 0.010MCG/KG/MIN,UNK
     Route: 065
     Dates: end: 20210727
  23. AMIODARONE HYDROCHLORIDE [Concomitant]
     Active Substance: AMIODARONE HYDROCHLORIDE
     Indication: Product used for unknown indication
     Dosage: 100 MG 2T ONCE DAILY
     Route: 065
  24. TANATRIL [Concomitant]
     Indication: Product used for unknown indication
     Dosage: 2.5MG, UNK
     Route: 065
     Dates: end: 20210914
  25. AZOSEMIDE [Concomitant]
     Active Substance: AZOSEMIDE
     Indication: Product used for unknown indication
     Dosage: 30 MG, UNK
     Route: 065
  26. AZOSEMIDE [Concomitant]
     Active Substance: AZOSEMIDE
     Dosage: 15 MG, UNK
     Route: 065
  27. AZOSEMIDE [Concomitant]
     Active Substance: AZOSEMIDE
     Dosage: 30 MG, UNK
     Route: 065
  28. AZOSEMIDE [Concomitant]
     Active Substance: AZOSEMIDE
     Dosage: 15 MG, UNK
     Route: 065

REACTIONS (16)
  - Cardiac failure chronic [Unknown]
  - Atrial fibrillation [Unknown]
  - Defect conduction intraventricular [Unknown]
  - Pulmonary congestion [Unknown]
  - Pleural effusion [Unknown]
  - Cardiomyopathy [Unknown]
  - Acute kidney injury [Unknown]
  - Cardiac failure [Unknown]
  - Cardiac failure [Unknown]
  - Cardiac failure [Unknown]
  - Cardiac failure [Unknown]
  - Renal impairment [Unknown]
  - Malaise [Unknown]
  - Dehydration [Unknown]
  - Decreased appetite [Unknown]
  - Underdose [Unknown]

NARRATIVE: CASE EVENT DATE: 20200101
